FAERS Safety Report 4506045-5 (Version None)
Quarter: 2004Q4

REPORT INFORMATION
  Report Type: 
  Country: None (occurrence: None)
  Receive Date: 20041025
  Receipt Date: 20031204
  Transmission Date: 20050328
  Serious: Yes (Other)
  Sender: FDA-Public Use
  Company Number: US-JNJFOC-20030804811

PATIENT
  Age: 24 Year
  Sex: Male
  Weight: 68.4932 kg

DRUGS (6)
  1. REMICADE [Suspect]
     Indication: CROHN'S DISEASE
     Dosage: INTRAVENOUS
     Route: 042
     Dates: start: 20000701, end: 20030601
  2. MERCAPTOPURINE [Concomitant]
  3. PENTASA [Concomitant]
  4. MULTIVITAMIN (MULTIVITAMIN) [Concomitant]
  5. CALCIUM (CALCIUM) [Concomitant]
  6. PURINETHOL [Concomitant]

REACTIONS (1)
  - SUICIDE ATTEMPT [None]
